FAERS Safety Report 16322314 (Version 1)
Quarter: 2019Q2

REPORT INFORMATION
  Report Type: Spontaneous
  Country: MX (occurrence: MX)
  Receive Date: 20190516
  Receipt Date: 20190516
  Transmission Date: 20190711
  Serious: Yes (Hospitalization, Other)
  Sender: FDA-Public Use
  Company Number: MX-GLAXOSMITHKLINE-MX2019GSK085670

PATIENT
  Age: 21 Year
  Sex: Female
  Weight: 47.5 kg

DRUGS (21)
  1. LEVETIRACETAM. [Interacting]
     Active Substance: LEVETIRACETAM
     Indication: SEIZURE
     Dosage: UNK
  2. WARFARIN [Interacting]
     Active Substance: WARFARIN
     Indication: SYSTEMIC LUPUS ERYTHEMATOSUS
  3. HYDROXYCHLOROQUINE [Suspect]
     Active Substance: HYDROXYCHLOROQUINE
     Indication: ANTIPHOSPHOLIPID SYNDROME
  4. HYDROXYCHLOROQUINE [Suspect]
     Active Substance: HYDROXYCHLOROQUINE
     Indication: SYSTEMIC LUPUS ERYTHEMATOSUS
  5. VALPROATE MAGNESIUM [Interacting]
     Active Substance: VALPROATE MAGNESIUM
     Indication: SEIZURE
  6. AZATHIOPRINE. [Concomitant]
     Active Substance: AZATHIOPRINE
     Indication: SYSTEMIC LUPUS ERYTHEMATOSUS
  7. CITALOPRAM [Concomitant]
     Active Substance: CITALOPRAM HYDROBROMIDE
     Indication: DEPRESSIVE SYMPTOM
     Dosage: UNK
  8. PHENOBARBITAL. [Interacting]
     Active Substance: PHENOBARBITAL
     Indication: SEIZURE
  9. TOPIRAMATE. [Suspect]
     Active Substance: TOPIRAMATE
     Indication: SEIZURE
  10. LAMOTRIGINE. [Suspect]
     Active Substance: LAMOTRIGINE
     Indication: SEIZURE
  11. TOPIRAMATE. [Suspect]
     Active Substance: TOPIRAMATE
     Indication: DEPRESSIVE SYMPTOM
  12. WARFARIN [Interacting]
     Active Substance: WARFARIN
     Indication: ANTIPHOSPHOLIPID SYNDROME
     Dosage: UNK
  13. VITAMIN D [Concomitant]
     Active Substance: VITAMIN D NOS
     Indication: VITAMIN SUPPLEMENTATION
  14. CITALOPRAM [Concomitant]
     Active Substance: CITALOPRAM HYDROBROMIDE
     Indication: SEIZURE
  15. AZATHIOPRINE. [Concomitant]
     Active Substance: AZATHIOPRINE
     Indication: ANTIPHOSPHOLIPID SYNDROME
  16. CALCIUM [Concomitant]
     Active Substance: CALCIUM
     Indication: MINERAL SUPPLEMENTATION
  17. VITAMIN D [Concomitant]
     Active Substance: VITAMIN D NOS
     Indication: ANTIPHOSPHOLIPID SYNDROME
  18. PREDNISONE. [Concomitant]
     Active Substance: PREDNISONE
     Indication: ANTIPHOSPHOLIPID SYNDROME
  19. PREDNISONE. [Concomitant]
     Active Substance: PREDNISONE
     Indication: SYSTEMIC LUPUS ERYTHEMATOSUS
  20. LAMOTRIGINE. [Interacting]
     Active Substance: LAMOTRIGINE
     Indication: DEPRESSIVE SYMPTOM
  21. VITAMIN D [Concomitant]
     Active Substance: VITAMIN D NOS
     Indication: SYSTEMIC LUPUS ERYTHEMATOSUS

REACTIONS (25)
  - Depressed mood [Unknown]
  - Impulsive behaviour [Unknown]
  - Status epilepticus [Unknown]
  - Insomnia [Unknown]
  - Suicidal ideation [Unknown]
  - Dizziness [Unknown]
  - Affect lability [Unknown]
  - Drug interaction [Unknown]
  - Cognitive disorder [Unknown]
  - Depression [Unknown]
  - Behaviour disorder [Unknown]
  - Suicide attempt [Unknown]
  - Abulia [Unknown]
  - Asthenia [Unknown]
  - Altered state of consciousness [Unknown]
  - Nausea [Unknown]
  - Hyperreflexia [Unknown]
  - Psychotic disorder [Unknown]
  - Sleep disorder [Unknown]
  - Cerebral atrophy [Unknown]
  - Intellectual disability [Unknown]
  - Anhedonia [Unknown]
  - Irritability [Unknown]
  - Drug ineffective [Unknown]
  - Psychotic symptom [Recovering/Resolving]
